FAERS Safety Report 11154691 (Version 1)
Quarter: 2015Q2

REPORT INFORMATION
  Report Type: Spontaneous
  Country: US (occurrence: None)
  Receive Date: 20150529
  Receipt Date: 20150529
  Transmission Date: 20150821
  Serious: Yes (Hospitalization)
  Sender: FDA-Public Use
  Company Number: 1224850-2015-00023

PATIENT
  Age: 53 Year
  Sex: Male

DRUGS (14)
  1. AFINITOR [Concomitant]
     Active Substance: EVEROLIMUS
  2. CELEXA [Concomitant]
     Active Substance: CITALOPRAM HYDROBROMIDE
  3. NIZORAL [Concomitant]
     Active Substance: KETOCONAZOLE
  4. OMEPRAZOLE. [Concomitant]
     Active Substance: OMEPRAZOLE
  5. ZYPREXA [Concomitant]
     Active Substance: OLANZAPINE
  6. METROGEL [Concomitant]
     Active Substance: METRONIDAZOLE
  7. PHOSLO [Suspect]
     Active Substance: CALCIUM ACETATE
     Route: 048
  8. TOPAMAX [Concomitant]
     Active Substance: TOPIRAMATE
  9. VIMPAT [Concomitant]
     Active Substance: LACOSAMIDE
  10. BENIZOL [Concomitant]
  11. CALCITROL [Concomitant]
     Active Substance: CALCITRIOL
  12. TEMAZEPAM. [Concomitant]
     Active Substance: TEMAZEPAM
  13. DOXYCILIN [Concomitant]
  14. SYNTHROID [Concomitant]
     Active Substance: LEVOTHYROXINE SODIUM

REACTIONS (6)
  - Abnormal behaviour [None]
  - Drug level decreased [None]
  - Seizure [None]
  - Confusional state [None]
  - Laceration [None]
  - Fall [None]

NARRATIVE: CASE EVENT DATE: 20120127
